FAERS Safety Report 15019601 (Version 1)
Quarter: 2018Q2

REPORT INFORMATION
  Report Type: Spontaneous
  Country: HU (occurrence: HU)
  Receive Date: 20180618
  Receipt Date: 20180618
  Transmission Date: 20180711
  Serious: Yes (Other)
  Sender: FDA-Public Use
  Company Number: HU-BRISTOL-MYERS SQUIBB COMPANY-BMS-2018-052786

PATIENT
  Age: 47 Year
  Sex: Male

DRUGS (5)
  1. IMATINIB [Suspect]
     Active Substance: IMATINIB
     Indication: CHRONIC MYELOID LEUKAEMIA
     Dosage: 600 MG, QD
     Route: 065
  2. DASATINIB. [Suspect]
     Active Substance: DASATINIB
     Indication: NEUTROPENIA
     Dosage: UNK
     Route: 065
  3. BOSUTINIB [Suspect]
     Active Substance: BOSUTINIB
     Indication: PRODUCT USED FOR UNKNOWN INDICATION
     Route: 065
  4. HYDROXYUREA. [Suspect]
     Active Substance: HYDROXYUREA
     Indication: PRODUCT USED FOR UNKNOWN INDICATION
     Route: 065
  5. NILOTINIB [Suspect]
     Active Substance: NILOTINIB
     Indication: ABDOMINAL DISCOMFORT
     Dosage: UNK
     Route: 065

REACTIONS (16)
  - Cytogenetic analysis abnormal [Unknown]
  - Rash maculo-papular [Unknown]
  - Neutropenia [Unknown]
  - Neutrophilic dermatosis [Unknown]
  - Skin hyperpigmentation [Unknown]
  - Acute generalised exanthematous pustulosis [Unknown]
  - Pigmentation disorder [Unknown]
  - Abdominal discomfort [Unknown]
  - Blood bilirubin increased [Unknown]
  - Stevens-Johnson syndrome [Unknown]
  - Pityriasis rosea [Unknown]
  - Product use in unapproved indication [Unknown]
  - Periorbital oedema [Unknown]
  - Psoriasis [Unknown]
  - Urticaria [Unknown]
  - Lichenoid keratosis [Unknown]
